FAERS Safety Report 17827880 (Version 1)
Quarter: 2020Q2

REPORT INFORMATION
  Report Type: Spontaneous
  Country: US (occurrence: US)
  Receive Date: 20200526
  Receipt Date: 20200526
  Transmission Date: 20200714
  Serious: Yes (Life-Threatening, Hospitalization)
  Sender: FDA-Public Use
  Company Number: None

PATIENT
  Age: 24 Year
  Sex: Male
  Weight: 36 kg

DRUGS (13)
  1. TIMOLOL. [Concomitant]
     Active Substance: TIMOLOL
  2. PROBIOTICS [Concomitant]
     Active Substance: PROBIOTICS NOS
  3. PRED FORTE [Concomitant]
     Active Substance: PREDNISOLONE ACETATE
  4. ANTACID [Concomitant]
     Active Substance: ALUMINUM HYDROXIDE\CALCIUM CARBONATE\DIMETHICONE\MAGNESIUM HYDROXIDE
  5. ALPHAGAN P [Concomitant]
     Active Substance: BRIMONIDINE TARTRATE
  6. SYNTHROID [Concomitant]
     Active Substance: LEVOTHYROXINE SODIUM
  7. VISION VIT [Concomitant]
  8. TACROLIMUS. [Concomitant]
     Active Substance: TACROLIMUS
  9. MILTIVIT [Concomitant]
  10. ALINIA [Suspect]
     Active Substance: NITAZOXANIDE
     Indication: CRYPTOSPORIDIOSIS INFECTION
     Dosage: ?          QUANTITY:1 TABLET(S);?
     Route: 048
     Dates: start: 20200422, end: 20200519
  11. PREDNISONE. [Concomitant]
     Active Substance: PREDNISONE
  12. MYCOPHENOLATE [Concomitant]
     Active Substance: MYCOPHENOLIC ACID
  13. BACTRIM [Concomitant]
     Active Substance: SULFAMETHOXAZOLE\TRIMETHOPRIM

REACTIONS (2)
  - Diarrhoea [None]
  - Immunosuppression [None]

NARRATIVE: CASE EVENT DATE: 20200511
